FAERS Safety Report 22533725 (Version 1)
Quarter: 2023Q2

REPORT INFORMATION
  Report Type: Spontaneous
  Country: US (occurrence: US)
  Receive Date: 20230608
  Receipt Date: 20230608
  Transmission Date: 20230722
  Serious: No
  Sender: FDA-Public Use
  Company Number: US-DENDREON PHARMACEUTICAL LLC-2022DEN000286

PATIENT

DRUGS (8)
  1. PROVENGE [Suspect]
     Active Substance: SIPULEUCEL-T
     Indication: Prostate cancer metastatic
     Dosage: DOSE 1
     Route: 042
     Dates: start: 20220912, end: 20220912
  2. XTANDI [Concomitant]
     Active Substance: ENZALUTAMIDE
     Indication: Prostate cancer metastatic
     Dosage: UNK, UNKNOWN
     Route: 065
  3. FLOMAX [Concomitant]
     Active Substance: TAMSULOSIN HYDROCHLORIDE
     Indication: Benign prostatic hyperplasia
     Dosage: UNK, UNKNOWN
     Route: 065
  4. LIPITOR [Concomitant]
     Active Substance: ATORVASTATIN CALCIUM
     Indication: Hyperlipidaemia
     Dosage: UNK, UNKNOWN
     Route: 065
  5. LOPRESSOR [Concomitant]
     Active Substance: METOPROLOL TARTRATE
     Indication: Hypertension
     Dosage: UNK, UNKNOWN
     Route: 065
  6. DIPHENHYDRAMINE [Concomitant]
     Active Substance: DIPHENHYDRAMINE
     Indication: Product used for unknown indication
     Route: 065
  7. IBUPROFEN [Concomitant]
     Active Substance: IBUPROFEN
     Indication: Product used for unknown indication
     Dosage: UNK, UNKNOWN
     Route: 065
  8. VITAMIN D2 [Concomitant]
     Active Substance: ERGOCALCIFEROL
     Indication: Supplementation therapy
     Dosage: UNK, UNKNOWN
     Route: 065

REACTIONS (5)
  - Blood pressure decreased [Recovered/Resolved]
  - Heart rate decreased [Recovered/Resolved]
  - Flushing [Recovered/Resolved]
  - Pallor [Recovered/Resolved]
  - Dizziness [Recovering/Resolving]

NARRATIVE: CASE EVENT DATE: 20220916
